FAERS Safety Report 25039810 (Version 1)
Quarter: 2025Q1

REPORT INFORMATION
  Report Type: Spontaneous
  Country: FR (occurrence: FR)
  Receive Date: 20250305
  Receipt Date: 20250305
  Transmission Date: 20250409
  Serious: Yes (Other)
  Sender: CELLTRION
  Company Number: None

PATIENT

DRUGS (1)
  1. INFLIXIMAB [Suspect]
     Active Substance: INFLIXIMAB
     Indication: Rheumatoid arthritis
     Route: 042
     Dates: start: 20020101, end: 20240301

REACTIONS (2)
  - Pericarditis [Recovered/Resolved]
  - Antinuclear antibody positive [Unknown]

NARRATIVE: CASE EVENT DATE: 20230701
